FAERS Safety Report 19472629 (Version 2)
Quarter: 2021Q3

REPORT INFORMATION
  Report Type: Spontaneous
  Country: PL (occurrence: PL)
  Receive Date: 20210629
  Receipt Date: 20210922
  Transmission Date: 20211014
  Serious: Yes (Hospitalization)
  Sender: FDA-Public Use
  Company Number: PL-GALDERMA-PL2021012382

PATIENT

DRUGS (5)
  1. AZITHROMYCIN ANHYDROUS. [Concomitant]
     Active Substance: AZITHROMYCIN ANHYDROUS
     Dosage: 1 GRAM PER DAY, QD
  2. CURACNE [Concomitant]
     Active Substance: ISOTRETINOIN
     Indication: ACNE FULMINANS
     Dosage: 60 MILLIGRAM PER DAY, QD
     Route: 048
  3. ADAPALENE, BENZOYL PEROXIDE [Suspect]
     Active Substance: ADAPALENE\BENZOYL PEROXIDE
     Indication: ACNE FULMINANS
     Dosage: 1 DOSAGE FORM
     Route: 065
  4. CURACNE [Concomitant]
     Active Substance: ISOTRETINOIN
     Dosage: 40 MILLIGRAM PER DAY, QD
     Route: 048
  5. AZITHROMYCIN ANHYDROUS. [Concomitant]
     Active Substance: AZITHROMYCIN ANHYDROUS
     Indication: ACNE FULMINANS
     Dosage: 1 GRAM PER WEEK, QWK
     Route: 065

REACTIONS (6)
  - C-reactive protein increased [Recovered/Resolved]
  - Drug ineffective for unapproved indication [Recovered/Resolved]
  - Neutrophilia [Recovered/Resolved]
  - Leukocytosis [Recovered/Resolved]
  - Red blood cell sedimentation rate increased [Recovered/Resolved]
  - Intentional product use issue [Recovered/Resolved]
